FAERS Safety Report 11356901 (Version 1)
Quarter: 2015Q3

REPORT INFORMATION
  Report Type: Spontaneous
  Country: US (occurrence: US)
  Receive Date: 20150803
  Receipt Date: 20150803
  Transmission Date: 20151125
  Serious: No
  Sender: FDA-Public Use
  Company Number: US-ELI_LILLY_AND_COMPANY-US201302007471

PATIENT
  Sex: Male

DRUGS (1)
  1. ZYPREXA [Suspect]
     Active Substance: OLANZAPINE
     Indication: SCHIZOPHRENIA, PARANOID TYPE
     Dosage: 1 DF, UNKNOWN

REACTIONS (4)
  - Circadian rhythm sleep disorder [Unknown]
  - General physical health deterioration [Unknown]
  - Bradyphrenia [Unknown]
  - Diabetes mellitus [Unknown]
